FAERS Safety Report 18752062 (Version 1)
Quarter: 2021Q1

REPORT INFORMATION
  Report Type: Spontaneous
  Country: JP (occurrence: JP)
  Receive Date: 20210118
  Receipt Date: 20210118
  Transmission Date: 20210419
  Serious: Yes (Hospitalization)
  Sender: FDA-Public Use
  Company Number: NVSC2020JP156570

PATIENT
  Age: 79 Year
  Sex: Female

DRUGS (1)
  1. RECLAST [Suspect]
     Active Substance: ZOLEDRONIC ACID
     Indication: PRODUCT USED FOR UNKNOWN INDICATION
     Dosage: 5 MG (YEARLY)
     Route: 041
     Dates: start: 20200114

REACTIONS (5)
  - Fatigue [Unknown]
  - Loose tooth [Unknown]
  - Gingival swelling [Unknown]
  - Gingivitis [Unknown]
  - Tooth disorder [Unknown]

NARRATIVE: CASE EVENT DATE: 202004
